FAERS Safety Report 6736875-0 (Version None)
Quarter: 2010Q2

REPORT INFORMATION
  Report Type: 
  Country: None (occurrence: None)
  Receive Date: 20100521
  Receipt Date: 20100520
  Transmission Date: 20101027
  Serious: Yes (Death, Hospitalization)
  Sender: FDA-Public Use
  Company Number: PHHO2009NL14327

PATIENT
  Sex: Male
  Weight: 87.8 kg

DRUGS (6)
  1. AEB071 AEB+GELCAP [Suspect]
     Indication: RENAL TRANSPLANT
     Dosage: 2 X 300MG
     Route: 048
     Dates: start: 20090909
  2. AEB071 AEB+GELCAP [Suspect]
     Dosage: 200 MG, BID
     Route: 048
     Dates: start: 20091103
  3. CERTICAN [Suspect]
     Indication: RENAL TRANSPLANT
  4. CORTICOSTEROIDS [Suspect]
  5. ASPIRIN [Concomitant]
  6. HEPARIN [Concomitant]

REACTIONS (15)
  - ARTERIOSCLEROSIS CORONARY ARTERY [None]
  - CARDIAC TAMPONADE [None]
  - CARDIO-RESPIRATORY ARREST [None]
  - CARDIOMEGALY [None]
  - CHEST PAIN [None]
  - DEEP VEIN THROMBOSIS [None]
  - DYSPNOEA [None]
  - EPSTEIN-BARR VIRUS INFECTION [None]
  - LUNG CONSOLIDATION [None]
  - PAIN IN EXTREMITY [None]
  - PAINFUL RESPIRATION [None]
  - PERICARDIAL EFFUSION [None]
  - PULMONARY CONGESTION [None]
  - PULMONARY EMBOLISM [None]
  - TACHYCARDIA [None]
